FAERS Safety Report 14149052 (Version 4)
Quarter: 2018Q2

REPORT INFORMATION
  Report Type: Spontaneous
  Country: DE (occurrence: DE)
  Receive Date: 20171101
  Receipt Date: 20180604
  Transmission Date: 20180711
  Serious: Yes (Hospitalization)
  Sender: FDA-Public Use
  Company Number: PHHY2017DE158000

PATIENT
  Age: 18 Year
  Sex: Female
  Weight: 62 kg

DRUGS (1)
  1. ILARIS [Suspect]
     Active Substance: CANAKINUMAB
     Indication: STILL^S DISEASE
     Dosage: 150 G, QMO
     Route: 058
     Dates: start: 20170422, end: 20170622

REACTIONS (2)
  - Histiocytosis haematophagic [Unknown]
  - Hepatitis [Not Recovered/Not Resolved]

NARRATIVE: CASE EVENT DATE: 201705
